FAERS Safety Report 15853445 (Version 1)
Quarter: 2019Q1

REPORT INFORMATION
  Report Type: Spontaneous
  Country: US (occurrence: US)
  Receive Date: 20190122
  Receipt Date: 20190122
  Transmission Date: 20190417
  Serious: No
  Sender: FDA-Public Use
  Company Number: US-SA-2019SA015492

PATIENT
  Sex: Female

DRUGS (1)
  1. DUPIXENT [Suspect]
     Active Substance: DUPILUMAB
     Dosage: 300 MG, QOW
     Route: 058
     Dates: start: 201707

REACTIONS (5)
  - Swelling of eyelid [Unknown]
  - Eye pruritus [Unknown]
  - Oral herpes [Unknown]
  - Skin exfoliation [Unknown]
  - Vision blurred [Unknown]
